FAERS Safety Report 22092152 (Version 2)
Quarter: 2023Q2

REPORT INFORMATION
  Report Type: Spontaneous
  Country: FI (occurrence: FI)
  Receive Date: 20230314
  Receipt Date: 20230403
  Transmission Date: 20230722
  Serious: Yes (Other)
  Sender: FDA-Public Use
  Company Number: FI-002147023-NVSC2023FI051410

PATIENT
  Age: 53 Year
  Sex: Female

DRUGS (12)
  1. AIMOVIG [Suspect]
     Active Substance: ERENUMAB-AOOE
     Indication: Migraine
     Dosage: 140 MILLIGRAM, QMO (AT INTERVALS OF 4 WEEKS)
     Route: 058
     Dates: start: 20230111
  2. AIMOVIG [Suspect]
     Active Substance: ERENUMAB-AOOE
     Dosage: UNK
     Route: 065
     Dates: start: 202302
  3. SEMAGLUTIDE [Suspect]
     Active Substance: SEMAGLUTIDE
     Indication: Obesity
     Dosage: 0.65 MILLIGRAM, QWK
     Route: 058
     Dates: start: 2022
  4. PITOFENONE [Suspect]
     Active Substance: PITOFENONE
     Indication: Pain
     Dosage: 1 DOSAGE FORM (1 - 2 TIME S PER DAY AS NEEDED )
     Route: 048
     Dates: start: 20230307
  5. BUDESONIDE\FORMOTEROL FUMARATE [Concomitant]
     Active Substance: BUDESONIDE\FORMOTEROL FUMARATE
     Indication: Asthma
     Dosage: UNK, BID (1-2 DOSES)
     Route: 055
  6. ALBUTEROL SULFATE [Concomitant]
     Active Substance: ALBUTEROL SULFATE
     Indication: Asthma
     Dosage: 1 DOSAGE FORM (1 - 4 TIME S PER DAY)
     Route: 055
  7. FLUTICASONE [Concomitant]
     Active Substance: FLUTICASONE
     Indication: Product used for unknown indication
     Dosage: UNK, BID
     Route: 065
  8. ELETRIPTAN HYDROBROMIDE [Concomitant]
     Active Substance: ELETRIPTAN HYDROBROMIDE
     Indication: Migraine
     Dosage: 1 DOSAGE FORM (ONCE PER DAY AS NEEDED)
     Route: 048
  9. Miranax [Concomitant]
     Indication: Pain
     Dosage: 1 DOSAGE FORM (1 - 2 TIME S PER DAY AS NEEDED)
     Route: 048
  10. PANADOL [Concomitant]
     Active Substance: ACETAMINOPHEN
     Indication: Pain
     Dosage: 1 DOSAGE FORM (1 - 3 TIME S PER DAY AS )
     Route: 048
  11. MONTELUKAST [Concomitant]
     Active Substance: MONTELUKAST SODIUM
     Indication: Asthma
     Dosage: 1 DOSAGE FORM, QD
     Route: 048
  12. ESOMEPRAZOLE [Concomitant]
     Active Substance: ESOMEPRAZOLE
     Indication: Product used for unknown indication
     Dosage: 1 DOSAGE FORM, QD (20-40MG)
     Route: 048

REACTIONS (5)
  - Alanine aminotransferase increased [Recovered/Resolved]
  - Constipation [Recovered/Resolved]
  - Cholelithiasis [Unknown]
  - Abdominal pain upper [Recovered/Resolved]
  - Abdominal pain upper [Recovered/Resolved]

NARRATIVE: CASE EVENT DATE: 20230201
